FAERS Safety Report 10967318 (Version 1)
Quarter: 2015Q1

REPORT INFORMATION
  Report Type: Spontaneous
  Country: US (occurrence: None)
  Receive Date: 20150226
  Receipt Date: 20150226
  Transmission Date: 20150721
  Serious: No
  Sender: FDA-Public Use
  Company Number: TPA2010A02085

PATIENT
  Age: 67 Year
  Sex: Female
  Weight: 88.45 kg

DRUGS (1)
  1. ULORIC [Suspect]
     Active Substance: FEBUXOSTAT
     Indication: GOUT
     Dates: start: 200912, end: 201001

REACTIONS (2)
  - Gout [None]
  - Drug ineffective [None]
